FAERS Safety Report 22664664 (Version 1)
Quarter: 2023Q2

REPORT INFORMATION
  Report Type: Spontaneous
  Country: US (occurrence: None)
  Receive Date: 20230630
  Receipt Date: 20230630
  Transmission Date: 20230722
  Serious: Yes (Other)
  Sender: FDA-Public Use
  Company Number: None

PATIENT
  Age: 64 Year
  Sex: Female
  Weight: 49.5 kg

DRUGS (6)
  1. MACRODANTIN [Suspect]
     Active Substance: NITROFURANTOIN
     Indication: Urinary tract infection
     Dosage: FREQUENCY : TWICE A DAY;?
     Route: 048
     Dates: start: 20230502, end: 20230509
  2. Advair discus 500/50 [Concomitant]
     Dates: start: 19990210
  3. ALBUTEROL [Concomitant]
     Active Substance: ALBUTEROL
     Dates: start: 19890210
  4. MONTELUKAST [Concomitant]
     Active Substance: MONTELUKAST SODIUM
     Dates: start: 19990210
  5. ALENDRONATE SODIUM [Concomitant]
     Active Substance: ALENDRONATE SODIUM
     Dates: start: 20190210
  6. Rosuvastatin 5 [Concomitant]

REACTIONS (3)
  - Pulmonary congestion [None]
  - Dyspnoea [None]
  - Cough [None]

NARRATIVE: CASE EVENT DATE: 20230509
